FAERS Safety Report 20998102 (Version 1)
Quarter: 2022Q2

REPORT INFORMATION
  Report Type: Spontaneous
  Country: US (occurrence: None)
  Receive Date: 20220623
  Receipt Date: 20220623
  Transmission Date: 20220721
  Serious: No
  Sender: FDA-Public Use
  Company Number: None

PATIENT
  Age: 68 Year
  Sex: Female
  Weight: 99.79 kg

DRUGS (8)
  1. INLYTA [Suspect]
     Active Substance: AXITINIB
     Indication: Renal cancer
     Dosage: OTHER FREQUENCY : Q12HOURS;?
     Route: 048
     Dates: start: 20220602
  2. ATORVASTATIN [Concomitant]
  3. EXCEDRIN [Concomitant]
  4. KEYTRUDA [Concomitant]
  5. HYDROCORTISONE [Concomitant]
  6. SPIRIVA [Concomitant]
  7. SYMBICORT [Concomitant]
  8. VICTOZA [Concomitant]

REACTIONS (1)
  - Hepatic enzyme increased [None]
